FAERS Safety Report 8887581 (Version 1)
Quarter: 2012Q4

REPORT INFORMATION
  Report Type: Spontaneous
  Country: US (occurrence: None)
  Receive Date: 20121106
  Receipt Date: 20121106
  Transmission Date: 20130627
  Serious: Yes (Disabling)
  Sender: FDA-Public Use
  Company Number: None

PATIENT
  Age: 39 Year
  Sex: Female
  Weight: 82.56 kg

DRUGS (1)
  1. METOCLOPRAMIDE [Suspect]

REACTIONS (2)
  - Headache [None]
  - Pyrexia [None]
